FAERS Safety Report 6714272-1 (Version None)
Quarter: 2010Q2

REPORT INFORMATION
  Report Type: 
  Country: None (occurrence: None)
  Receive Date: 20100506
  Receipt Date: 20091020
  Transmission Date: 20101027
  Serious: No
  Sender: FDA-Public Use
  Company Number: US-BAUSCH-2009BL005289

PATIENT
  Age: 84 Year
  Sex: Female

DRUGS (7)
  1. LOTEMAX [Suspect]
     Indication: POSTOPERATIVE CARE
     Route: 047
     Dates: start: 20091013
  2. SOOTHE XP [Suspect]
     Indication: EYE IRRITATION
     Route: 047
     Dates: start: 20091013
  3. PRESERVISION AREDS SOFT GELS [Suspect]
     Indication: VITAMIN SUPPLEMENTATION
     Route: 048
     Dates: start: 20091013
  4. PLAVIX [Concomitant]
  5. ASPIRIN [Concomitant]
  6. FISH OIL [Concomitant]
  7. CALCIUM WITH VITAMIN D [Concomitant]

REACTIONS (1)
  - DIZZINESS [None]
